FAERS Safety Report 24048535 (Version 1)
Quarter: 2024Q3

REPORT INFORMATION
  Report Type: Spontaneous
  Country: US (occurrence: US)
  Receive Date: 20240704
  Receipt Date: 20240704
  Transmission Date: 20241017
  Serious: No
  Sender: GLAXOSMITHKLINE
  Company Number: US-GLAXOSMITHKLINE-US2024AMR079933

PATIENT
  Sex: Female
  Weight: 61.23 kg

DRUGS (2)
  1. ZEJULA [Suspect]
     Active Substance: NIRAPARIB
     Indication: Ovarian cancer
     Dosage: 200 MG, QD
     Route: 048
     Dates: start: 20240531
  2. ZEJULA [Suspect]
     Active Substance: NIRAPARIB
     Dosage: UNK; REDUCED STRENGTH

REACTIONS (1)
  - Platelet count decreased [Unknown]
